FAERS Safety Report 8435076-8 (Version None)
Quarter: 2012Q2

REPORT INFORMATION
  Report Type: 
  Country: None (occurrence: None)
  Receive Date: 20120614
  Receipt Date: 20120607
  Transmission Date: 20120825
  Serious: Yes (Hospitalization)
  Sender: FDA-Public Use
  Company Number: PHFR2012GB003346

PATIENT
  Age: 76 Year
  Sex: Male

DRUGS (5)
  1. DICLOFENAC SODIUM [Suspect]
     Indication: OSTEOARTHRITIS
     Route: 048
  2. SILDENAFIL [Concomitant]
  3. CINNARIZINE [Concomitant]
  4. SIMVASTATIN [Suspect]
     Indication: HYPERCHOLESTEROLAEMIA
     Route: 048
  5. GLUCOSAMINE [Concomitant]

REACTIONS (3)
  - RHABDOMYOLYSIS [None]
  - MYOPATHY [None]
  - RENAL FAILURE ACUTE [None]
